FAERS Safety Report 8244040 (Version 2)
Quarter: 2012Q4

REPORT INFORMATION
  Report Type: 
  Country: US (occurrence: US)
  Receive Date: 20111114
  Receipt Date: 20121015
  Transmission Date: 20130627
  Serious: Yes (Other)
  Sender: FDA-Public Use
  Company Number: US-ASTRAZENECA-2011SE66948

PATIENT
  Age: 67 Year
  Sex: Female
  Weight: 65.7 kg

DRUGS (17)
  1. PRILOSEC [Suspect]
     Route: 048
  2. PRILOSEC OTC [Suspect]
     Route: 048
  3. CRESTOR [Suspect]
     Route: 048
  4. LISINOPRIL [Suspect]
     Route: 048
  5. SYNTHROID [Concomitant]
     Dosage: 75 MCG ONE TABLET PER DAY FIVE DAYS A WEEK
     Route: 048
  6. SYNTHROID [Concomitant]
     Dosage: 88 MCG ONE TABLET DAILY
     Route: 048
  7. MAGIC MOUTHWASH [Concomitant]
     Dosage: ONE TEASPOON SWISH AND SWALLOWED QID
  8. KRISTALOSE [Concomitant]
     Route: 048
  9. ESTROPIPATE [Concomitant]
     Dosage: 0.5 DF DAILY THREE DAYS A WEEK
  10. DILTIAZEM ER [Concomitant]
     Route: 048
  11. ATIVAN [Concomitant]
  12. ATIVAN [Concomitant]
  13. ASPIRIN EC [Concomitant]
     Route: 048
  14. FLECAINIDE [Concomitant]
     Route: 048
  15. QNASL [Concomitant]
     Dosage: 160 MCG 2 SPRAY IN EACH NOSTRIL
     Route: 045
  16. PANTOPRAZOLE [Concomitant]
     Route: 048
  17. VARICELLA VIRUS VACCINE LIVE [Concomitant]
     Dosage: PF 1.350 UNIT /0.5 ML SUB-Q SOLN,ONE TIME VACCINATION

REACTIONS (26)
  - Atrial fibrillation [Unknown]
  - Fibrocystic breast disease [Unknown]
  - Anxiety [Unknown]
  - Arthritis [Unknown]
  - Gastrooesophageal reflux disease [Unknown]
  - Hyperlipidaemia [Unknown]
  - Hypothyroidism [Unknown]
  - Hypertension [Unknown]
  - Irritable bowel syndrome [Unknown]
  - Palpitations [Unknown]
  - Dyspnoea [Unknown]
  - Temporomandibular joint syndrome [Unknown]
  - Oropharyngeal pain [Unknown]
  - Tongue discolouration [Unknown]
  - Dysphonia [Unknown]
  - Cough [Unknown]
  - Dysphagia [Unknown]
  - Branchial cyst [Unknown]
  - Vomiting [Unknown]
  - Constipation [Unknown]
  - Headache [Unknown]
  - Sleep disorder [Unknown]
  - Oral discomfort [Unknown]
  - Hypoaesthesia oral [Unknown]
  - Drug ineffective [Unknown]
  - Off label use [Unknown]
